FAERS Safety Report 6922947-4 (Version None)
Quarter: 2010Q3

REPORT INFORMATION
  Report Type: 
  Country: None (occurrence: None)
  Receive Date: 20100813
  Receipt Date: 20100811
  Transmission Date: 20110219
  Serious: Yes (Death, Hospitalization)
  Sender: FDA-Public Use
  Company Number: PHHY2010BR53123

PATIENT
  Sex: Male

DRUGS (4)
  1. EXELON [Suspect]
     Indication: DEMENTIA ALZHEIMER'S TYPE
     Dosage: 4.5 MG ONE CAPSULE PER DAY
     Route: 048
  2. EXELON [Suspect]
     Dosage: 3 MG, TWO CAPSULES PER DAY
  3. AGLUCOSE [Concomitant]
     Indication: TYPE 2 DIABETES MELLITUS
     Dosage: 2 DF, QD
     Route: 048
     Dates: start: 19900101, end: 20100401
  4. ENALAPRIL [Concomitant]
     Indication: HYPERTENSION
     Dosage: 2 DF, QD
     Route: 048
     Dates: start: 19900101, end: 20100401

REACTIONS (9)
  - BLOOD GLUCOSE INCREASED [None]
  - BLOOD PRESSURE DECREASED [None]
  - DIABETIC COMA [None]
  - DIABETIC COMPLICATION [None]
  - DYSPNOEA [None]
  - HYPERTENSION [None]
  - SENILE DEMENTIA [None]
  - TREMOR [None]
  - VOMITING [None]
